FAERS Safety Report 20351509 (Version 1)
Quarter: 2022Q1

REPORT INFORMATION
  Report Type: Spontaneous
  Country: IR (occurrence: IR)
  Receive Date: 20220119
  Receipt Date: 20220119
  Transmission Date: 20220423
  Serious: Yes (Death, Other)
  Sender: FDA-Public Use
  Company Number: IR-GILEAD-2022-0564911

PATIENT
  Age: 56 Year
  Sex: Male

DRUGS (5)
  1. VEKLURY [Suspect]
     Active Substance: REMDESIVIR
     Indication: COVID-19
     Dosage: 200 MG, ONCE
     Route: 042
  2. VEKLURY [Suspect]
     Active Substance: REMDESIVIR
     Dosage: 100 MG, QD
     Route: 042
  3. PREDNISOLONE [Concomitant]
     Active Substance: PREDNISOLONE
     Dosage: UNK
  4. CELLCEPT [Concomitant]
     Active Substance: MYCOPHENOLATE MOFETIL
     Dosage: UNK
     Dates: start: 2020, end: 2021
  5. TACROLIMUS [Concomitant]
     Active Substance: TACROLIMUS
     Dosage: UNK
     Dates: start: 2020

REACTIONS (1)
  - Drug ineffective [Fatal]
